FAERS Safety Report 12455370 (Version 1)
Quarter: 2016Q2

REPORT INFORMATION
  Report Type: Spontaneous
  Country: BE (occurrence: BE)
  Receive Date: 20160610
  Receipt Date: 20160610
  Transmission Date: 20160815
  Serious: Yes (Other)
  Sender: FDA-Public Use
  Company Number: BE-ELI_LILLY_AND_COMPANY-BE201606003259

PATIENT
  Age: 70 Year
  Sex: Male

DRUGS (7)
  1. ERBITUX [Suspect]
     Active Substance: CETUXIMAB
     Indication: OROPHARYNGEAL CANCER
     Dosage: 400 MG/M2, SINGLE
     Route: 065
     Dates: start: 200606
  2. CIPROFLOXACIN. [Concomitant]
     Active Substance: CIPROFLOXACIN
     Indication: ANTIBIOTIC PROPHYLAXIS
     Dosage: 500 MG, BID
     Route: 065
  3. DEXAMETHASONE. [Concomitant]
     Active Substance: DEXAMETHASONE
     Indication: OROPHARYNGEAL CANCER RECURRENT
     Dosage: 8 MG, BID
     Route: 048
     Dates: start: 200606
  4. CISPLATIN. [Suspect]
     Active Substance: CISPLATIN
     Indication: OROPHARYNGEAL CANCER RECURRENT
     Dosage: 75 MG/M2, UNKNOWN
     Route: 065
     Dates: start: 200606
  5. DOCETAXEL. [Suspect]
     Active Substance: DOCETAXEL
     Indication: OROPHARYNGEAL CANCER RECURRENT
     Dosage: 75 MG/M2, CYCLICAL
     Route: 065
     Dates: start: 200606
  6. 5-FU                               /00098801/ [Suspect]
     Active Substance: FLUOROURACIL
     Indication: OROPHARYNGEAL CANCER RECURRENT
     Dosage: 750 MG/M2, UNK
     Dates: start: 200606
  7. ERBITUX [Suspect]
     Active Substance: CETUXIMAB
     Dosage: 250 MG/M2, CYCLICAL
     Route: 065

REACTIONS (2)
  - Peripheral sensory neuropathy [Unknown]
  - Deafness [Unknown]

NARRATIVE: CASE EVENT DATE: 201409
